FAERS Safety Report 7690710-5 (Version None)
Quarter: 2011Q3

REPORT INFORMATION
  Report Type: 
  Country: None (occurrence: None)
  Receive Date: 20110812
  Receipt Date: 20110729
  Transmission Date: 20111222
  Serious: Yes (Hospitalization, Other)
  Sender: FDA-Public Use
  Company Number: 2010P1002570

PATIENT
  Age: 61 Year
  Sex: Female
  Weight: 65.7716 kg

DRUGS (37)
  1. OPANA [Suspect]
     Dates: end: 20100201
  2. WELLBUTRIN XL [Concomitant]
  3. FENTANYL [Suspect]
     Indication: BACK PAIN
     Dosage: 25 -  50 MCG/HR;Q72H;TDER
     Route: 062
     Dates: start: 20100101, end: 20101001
  4. FENTANYL [Suspect]
     Indication: BACK PAIN
     Dosage: 25 -  50 MCG/HR;Q72H;TDER
     Route: 062
     Dates: start: 20110519
  5. TORADOL [Suspect]
     Dosage: PRN
     Dates: start: 20100710
  6. TORADOL [Suspect]
     Dosage: PRN
     Dates: start: 20100707, end: 20100710
  7. LEXISCAN [Suspect]
     Dates: start: 20100701, end: 20100701
  8. NUCYNTA [Concomitant]
  9. VITAMIN B-12 [Concomitant]
  10. FLEXERIL [Concomitant]
  11. ESTRADIOL [Concomitant]
  12. ZOFRAN [Concomitant]
  13. FENTANYL-25 [Suspect]
     Indication: BACK PAIN
     Dosage: 1-2 PATCHES;Q72H;TDER
     Route: 062
     Dates: start: 20100101
  14. FOSAMAX PLUS D [Concomitant]
  15. SKELAXIN [Concomitant]
  16. LACTULOSE [Concomitant]
  17. AVELOX [Concomitant]
  18. LORTAB [Suspect]
     Dates: end: 20110501
  19. PRISTIQ [Concomitant]
  20. IBUPROFEN [Concomitant]
  21. ROBAXIN [Concomitant]
  22. LYRICA [Concomitant]
  23. PROMETHAZINE [Concomitant]
  24. AMBIEN CR [Concomitant]
  25. LORTAB [Concomitant]
  26. NORFLEX [Concomitant]
  27. NYSTATIN SWISH AND SWALLOW [Concomitant]
  28. PHENAZOPYRIDINE HCL TAB [Concomitant]
  29. VITAMIN B6/ FOLIC ACID [Concomitant]
  30. PROZAC [Concomitant]
  31. COLACE [Concomitant]
  32. ABILIFY [Concomitant]
  33. AMBIEN CR [Suspect]
  34. MYOVIEW [Suspect]
     Dates: start: 20100701, end: 20100701
  35. MIRALAX [Concomitant]
  36. FERROUS SULFATE TAB [Concomitant]
  37. TYLENOL-500 [Concomitant]

REACTIONS (62)
  - DERMATITIS [None]
  - CARDIAC MURMUR [None]
  - RENAL FAILURE CHRONIC [None]
  - ANAEMIA [None]
  - DRUG EFFECT INCREASED [None]
  - MENISCUS LESION [None]
  - HEPATIC FAILURE [None]
  - DYSURIA [None]
  - INTENTIONAL OVERDOSE [None]
  - DRUG EFFECT DECREASED [None]
  - NAUSEA [None]
  - GASTROOESOPHAGEAL REFLUX DISEASE [None]
  - ANXIETY [None]
  - WEIGHT INCREASED [None]
  - URINARY HESITATION [None]
  - SUICIDE ATTEMPT [None]
  - HYPOKALAEMIA [None]
  - MUSCLE SPASMS [None]
  - BLOOD GLUCOSE INCREASED [None]
  - NEPHROLITHIASIS [None]
  - MYOCARDIAL INFARCTION [None]
  - CHEST PAIN [None]
  - PRURITUS [None]
  - FATIGUE [None]
  - BRONCHITIS [None]
  - CONTUSION [None]
  - APPLICATION SITE RASH [None]
  - BREAST MASS [None]
  - HYPERPARATHYROIDISM [None]
  - DRUG WITHDRAWAL SYNDROME [None]
  - IRON DEFICIENCY ANAEMIA [None]
  - ARTHRITIS [None]
  - MIGRAINE [None]
  - OEDEMA PERIPHERAL [None]
  - PARAESTHESIA [None]
  - PHOTOSENSITIVITY REACTION [None]
  - NEPHROPATHY [None]
  - VITAMIN D DEFICIENCY [None]
  - LOSS OF CONSCIOUSNESS [None]
  - DYSPNOEA [None]
  - BLOOD ALBUMIN DECREASED [None]
  - HYPERPHAGIA [None]
  - DYSPEPSIA [None]
  - BACK PAIN [None]
  - SKIN ULCER [None]
  - INFLUENZA LIKE ILLNESS [None]
  - RASH PRURITIC [None]
  - STRESS [None]
  - OROPHARYNGEAL PAIN [None]
  - MITRAL VALVE CALCIFICATION [None]
  - EXOSTOSIS [None]
  - VITAMIN B12 DEFICIENCY [None]
  - PALPITATIONS [None]
  - DEPRESSION [None]
  - CONSTIPATION [None]
  - RASH [None]
  - PAIN IN EXTREMITY [None]
  - ARTHRALGIA [None]
  - HYPOAESTHESIA [None]
  - HEADACHE [None]
  - ATRIOVENTRICULAR BLOCK FIRST DEGREE [None]
  - BLOOD CALCIUM DECREASED [None]
